FAERS Safety Report 5531004-3 (Version None)
Quarter: 2007Q4

REPORT INFORMATION
  Report Type: 
  Country: None (occurrence: None)
  Receive Date: 20071130
  Receipt Date: 20071120
  Transmission Date: 20080405
  Serious: Yes (Other)
  Sender: FDA-Public Use
  Company Number: US-PFIZER INC-2007090597

PATIENT
  Sex: Female
  Weight: 61.363 kg

DRUGS (12)
  1. CHANTIX [Suspect]
     Indication: SMOKING CESSATION THERAPY
  2. PREDNISONE TAB [Concomitant]
     Indication: PNEUMONIA
  3. LEXAPRO [Concomitant]
     Indication: DEPRESSION
  4. ESTROGENS [Concomitant]
  5. DETROL LA [Concomitant]
     Indication: HYPERTONIC BLADDER
  6. LORATADINE [Concomitant]
     Indication: HYPERSENSITIVITY
  7. PEPCID [Concomitant]
     Indication: GASTRIC DISORDER
  8. ESTRACE [Concomitant]
  9. ALBUTEROL [Concomitant]
  10. TRAZODONE HCL [Concomitant]
  11. VICODIN [Concomitant]
  12. DETROL [Concomitant]

REACTIONS (3)
  - GAIT DISTURBANCE [None]
  - MUSCLE SPASMS [None]
  - PAIN [None]
